FAERS Safety Report 5716247-8 (Version None)
Quarter: 2008Q2

REPORT INFORMATION
  Report Type: 
  Country: None (occurrence: None)
  Receive Date: 20080424
  Receipt Date: 20080414
  Transmission Date: 20081010
  Serious: Yes (Death, Hospitalization)
  Sender: FDA-Public Use
  Company Number: A0722443A

PATIENT
  Age: 28 Year
  Sex: Male
  Weight: 57.7 kg

DRUGS (9)
  1. ADVAIR HFA [Suspect]
     Indication: ASTHMA
     Dosage: 1PUFF TWICE PER DAY
     Route: 055
     Dates: start: 20060919
  2. ALBUTEROL [Concomitant]
  3. ATROVENT [Concomitant]
  4. ZITHROMAX [Concomitant]
  5. PREDNISONE [Concomitant]
  6. SINGULAIR [Concomitant]
     Dates: start: 20060919
  7. SPIRIVA [Concomitant]
     Dates: start: 20060919
  8. PROTONIX [Concomitant]
     Dates: start: 20060919
  9. HEPARIN [Concomitant]
     Dates: start: 20060919

REACTIONS (2)
  - ASTHMA [None]
  - CARDIO-RESPIRATORY ARREST [None]
